FAERS Safety Report 11970354 (Version 1)
Quarter: 2016Q1

REPORT INFORMATION
  Report Type: Spontaneous
  Country: US (occurrence: None)
  Receive Date: 20160127
  Receipt Date: 20160127
  Transmission Date: 20160526
  Serious: Yes (Other)
  Sender: FDA-Public Use
  Company Number: None

PATIENT
  Age: 39 Year
  Sex: Female

DRUGS (1)
  1. HUMIRA [Suspect]
     Active Substance: ADALIMUMAB
     Indication: CROHN^S DISEASE
     Dosage: INJECTABLE,  EVERY OTHER WEEK
     Route: 058
     Dates: start: 20151223, end: 20160125

REACTIONS (4)
  - Dysgeusia [None]
  - Chest discomfort [None]
  - Dyspnoea [None]
  - Thirst [None]

NARRATIVE: CASE EVENT DATE: 20160125
